FAERS Safety Report 5317049-7 (Version None)
Quarter: 2007Q2

REPORT INFORMATION
  Report Type: 
  Country: None (occurrence: None)
  Receive Date: 20070504
  Receipt Date: 20070424
  Transmission Date: 20071010
  Serious: Yes (Other)
  Sender: FDA-Public Use
  Company Number: US-ROCHE-489655

PATIENT
  Age: 38 Year
  Sex: Female
  Weight: 63 kg

DRUGS (39)
  1. DACLIZUMAB [Suspect]
     Indication: MULTIPLE SCLEROSIS
     Dosage: RECEIVED SCHEDULED 7TH AND LAST DOSE ON 29 DECEMBER 2005.
     Route: 058
     Dates: start: 20050922, end: 20051229
  2. AMBIEN [Concomitant]
     Dates: start: 20050406
  3. IBUPROFEN [Concomitant]
     Dates: start: 20040501, end: 20061008
  4. REBIF [Concomitant]
     Dates: start: 20040501
  5. QUININE SULFATE [Concomitant]
     Dates: start: 20050513, end: 20050901
  6. GABAPENTIN [Concomitant]
     Dates: start: 20040901, end: 20060505
  7. ZANAFLEX [Concomitant]
     Dates: start: 20050908, end: 20050911
  8. 1 CONCOMITANT DRUG [Concomitant]
     Dosage: HORMONAL BIRTH CONTROL
  9. INTERFERON BETA-1A [Concomitant]
  10. 1 CONCOMITANT DRUG [Concomitant]
     Dosage: DRUG NAME REPORTED AS GLATIRAMER.
  11. 1 CONCOMITANT DRUG [Concomitant]
     Dosage: DRUG NAME REPORTED AS ZOLDIPEM.
  12. PREDNISONE TAB [Concomitant]
     Dates: start: 20060307, end: 20060429
  13. PREGABALIN [Concomitant]
  14. LIDOCAINE [Concomitant]
     Dates: start: 20050908, end: 20050908
  15. KEFLEX [Concomitant]
     Dates: start: 20051020, end: 20051031
  16. EMLA [Concomitant]
     Dates: start: 20051020
  17. ALBUTEROL [Concomitant]
     Dates: start: 20051104, end: 20051106
  18. FLEXERIL [Concomitant]
     Dates: start: 20051111, end: 20051123
  19. ACYCLOVIR [Concomitant]
     Dates: start: 20051129, end: 20060218
  20. MONISTAT [Concomitant]
     Dates: start: 20051213, end: 20051231
  21. NYSTATIN [Concomitant]
     Dates: start: 20060104, end: 20060326
  22. FLUCONAZOLE [Concomitant]
     Dates: start: 20060107, end: 20060117
  23. METRONIDAZOLE [Concomitant]
     Dates: start: 20060118, end: 20060228
  24. CLOBETASOL PROPIONATE [Concomitant]
     Dates: start: 20060118, end: 20060315
  25. DESONIDE [Concomitant]
     Dates: start: 20060118, end: 20060305
  26. BENADRYL [Concomitant]
     Dates: start: 20060112, end: 20060202
  27. NIZORAL [Concomitant]
     Dates: start: 20060118, end: 20060224
  28. METROGEL [Concomitant]
     Dates: start: 20060223, end: 20060227
  29. HEMORRHOIDAL MEDICATION NOS [Concomitant]
     Dosage: DRUG NAME REPORTED AS HEMORRHOIDAL HC.
     Dates: start: 20060221, end: 20060301
  30. TYLENOL W/ CODEINE [Concomitant]
     Dates: start: 20060301, end: 20060302
  31. GENTAMICIN [Concomitant]
     Dates: start: 20060307, end: 20060512
  32. 1 CONCOMITANT DRUG [Concomitant]
     Dosage: DRUG NAME REPORTED AS PROCTOSOL.
     Dates: start: 20060302, end: 20060316
  33. LIDOCAINE [Concomitant]
     Dates: start: 20060302
  34. SEPTRA DS [Concomitant]
     Dates: start: 20060311, end: 20060316
  35. REBIF [Concomitant]
     Dates: start: 20060312
  36. NEURONTIN [Concomitant]
     Dates: start: 20060505, end: 20060708
  37. LYRICA [Concomitant]
     Dates: start: 20060508
  38. MEDROL [Concomitant]
     Dates: start: 20061116, end: 20061118
  39. FAMOTIDINE [Concomitant]
     Dates: start: 20061116, end: 20061118

REACTIONS (1)
  - BREAST CANCER [None]
